FAERS Safety Report 20775835 (Version 1)
Quarter: 2022Q2

REPORT INFORMATION
  Report Type: Spontaneous
  Country: FR (occurrence: FR)
  Receive Date: 20220502
  Receipt Date: 20220502
  Transmission Date: 20220721
  Serious: Yes (Hospitalization)
  Sender: FDA-Public Use
  Company Number: None

PATIENT
  Age: 16 Year
  Sex: Male

DRUGS (3)
  1. SERTRALINE [Suspect]
     Active Substance: SERTRALINE HYDROCHLORIDE
     Dosage: UNK
  2. TRAMADOL [Suspect]
     Active Substance: TRAMADOL
     Dosage: UNK
  3. KETAMINE [Suspect]
     Active Substance: KETAMINE
     Dosage: UNK

REACTIONS (3)
  - Poisoning [Unknown]
  - Agitation [Recovered/Resolved]
  - Tachycardia [Recovered/Resolved]
